FAERS Safety Report 17224546 (Version 1)
Quarter: 2020Q1

REPORT INFORMATION
  Report Type: Report from Study
  Country: IT (occurrence: IT)
  Receive Date: 20200102
  Receipt Date: 20200102
  Transmission Date: 20200409
  Serious: Yes (Other)
  Sender: FDA-Public Use
  Company Number: IT-MYLANLABS-2019M1129102

PATIENT
  Age: 85 Year
  Sex: Female

DRUGS (9)
  1. BISOPROLOL [Suspect]
     Active Substance: BISOPROLOL
     Indication: CARDIAC FAILURE
     Dosage: 1.25 MILLIGRAM, QD
     Route: 048
     Dates: start: 20170628
  2. NITRODERM [Concomitant]
     Active Substance: NITROGLYCERIN
     Dosage: 2 DOSAGE FORM, QD
     Route: 062
     Dates: start: 20150723
  3. CARDIOASPIRIN [Concomitant]
     Active Substance: ASPIRIN
     Dosage: 100 MILLIGRAM, QD
     Route: 048
     Dates: start: 20190403
  4. HALCION [Concomitant]
     Active Substance: TRIAZOLAM
     Dosage: 1 DOSAGE FORM, QD
     Route: 048
  5. REMERON [Concomitant]
     Active Substance: MIRTAZAPINE
     Dosage: 15 MILLIGRAM, QD
     Route: 048
     Dates: start: 20141016
  6. RIFACOL [Concomitant]
     Active Substance: RIFAXIMIN
     Dosage: 6 DOSAGE FORM, QD
     Route: 048
     Dates: start: 20180327
  7. LAEVOLAC EPS [Concomitant]
     Dosage: 4 DOSAGE FORM, QD
     Route: 048
  8. DOMPERIDONE [Concomitant]
     Active Substance: DOMPERIDONE
     Dosage: 20 MILLIGRAM, QD
     Route: 048
     Dates: start: 20150227
  9. OMEPRAZOLE. [Concomitant]
     Active Substance: OMEPRAZOLE
     Dosage: 20 MILLIGRAM, QD
     Route: 048
     Dates: start: 20170201

REACTIONS (2)
  - Heart rate irregular [Recovering/Resolving]
  - Drug ineffective [Recovering/Resolving]

NARRATIVE: CASE EVENT DATE: 20190821
